FAERS Safety Report 8812555 (Version 2)
Quarter: 2012Q4

REPORT INFORMATION
  Report Type: 
  Country: SV (occurrence: SV)
  Receive Date: 20120927
  Receipt Date: 20121004
  Transmission Date: 20130627
  Serious: Yes (Death, Other)
  Sender: FDA-Public Use
  Company Number: PHHO2006SV06274

PATIENT
  Sex: Female
  Weight: 74 kg

DRUGS (2)
  1. GLIVEC [Suspect]
     Indication: CHRONIC MYELOID LEUKAEMIA
     Dates: start: 20030912
  2. GLIVEC [Suspect]
     Dosage: 400 mg, UNK
     Route: 048
     Dates: start: 20031008, end: 20060416

REACTIONS (9)
  - Leukaemic infiltration [Fatal]
  - Bronchopneumonia [Fatal]
  - Infection [Fatal]
  - Pulmonary haemorrhage [Fatal]
  - Cerebral haemorrhage [Fatal]
  - Loss of consciousness [Fatal]
  - Respiratory rate [Fatal]
  - Pupillary reflex impaired [Fatal]
  - Thrombocytopenia [Unknown]
